FAERS Safety Report 13024500 (Version 5)
Quarter: 2017Q1

REPORT INFORMATION
  Report Type: Report from Study
  Country: US (occurrence: US)
  Receive Date: 20161213
  Receipt Date: 20170131
  Transmission Date: 20170428
  Serious: Yes (Hospitalization)
  Sender: FDA-Public Use
  Company Number: US-ACTELION-A-US2016-146720

PATIENT
  Age: 48 Year
  Sex: Female

DRUGS (5)
  1. SILDENAFIL CITRATE. [Concomitant]
     Active Substance: SILDENAFIL CITRATE
  2. UPTRAVI [Suspect]
     Active Substance: SELEXIPAG
     Indication: PULMONARY HYPERTENSION
     Dosage: 200 MCG AM, 400 MCG PM
     Route: 048
     Dates: start: 20161208
  3. XARELTO [Concomitant]
     Active Substance: RIVAROXABAN
  4. OPSUMIT [Suspect]
     Active Substance: MACITENTAN
     Indication: PULMONARY HYPERTENSION
     Dosage: 10 MG, QD
     Route: 048
     Dates: start: 20150901
  5. VERAPAMIL [Concomitant]
     Active Substance: VERAPAMIL HYDROCHLORIDE

REACTIONS (12)
  - Headache [Recovering/Resolving]
  - Hypokalaemia [Unknown]
  - Dysgeusia [Unknown]
  - Myalgia [Unknown]
  - Pain in extremity [Unknown]
  - Implantable defibrillator insertion [Unknown]
  - Vomiting [Recovering/Resolving]
  - Pain in jaw [Unknown]
  - Cardiac arrest [Unknown]
  - Loss of consciousness [Unknown]
  - Nausea [Unknown]
  - Diarrhoea [Unknown]
